FAERS Safety Report 6108570-2 (Version None)
Quarter: 2009Q1

REPORT INFORMATION
  Report Type: 
  Country: None (occurrence: None)
  Receive Date: 20090309
  Receipt Date: 20090304
  Transmission Date: 20090719
  Serious: Yes (Death, Hospitalization)
  Sender: FDA-Public Use
  Company Number: ZA-ABBOTT-09P-143-0499385-00

PATIENT
  Age: 22 Year
  Sex: Male

DRUGS (9)
  1. HUMIRA [Suspect]
     Indication: POLYARTERITIS NODOSA
     Dates: start: 20070101
  2. HUMIRA [Suspect]
     Indication: PSORIASIS
  3. MOFETIL [Concomitant]
     Indication: PSORIASIS
     Route: 048
     Dates: end: 20081202
  4. METHOTREXATE [Concomitant]
     Indication: PSORIASIS
     Route: 048
     Dates: end: 20081202
  5. PREDNISONE [Concomitant]
     Indication: POLYARTERITIS NODOSA
     Route: 048
     Dates: end: 20081202
  6. BISPHOSPHANATE [Concomitant]
     Indication: OSTEOPOROSIS
     Route: 048
     Dates: end: 20081202
  7. ANTIHYPERTENSIVES (DETAILS NOS) [Concomitant]
     Indication: HYPERTENSION
     Route: 048
     Dates: end: 20081202
  8. ANTIHYPERTENSIVES (DETAILS NOS) [Concomitant]
     Indication: CUSHING'S SYNDROME
  9. CREAMS (DETAILS NOS) [Concomitant]
     Indication: PSORIASIS
     Route: 061
     Dates: end: 20081202

REACTIONS (7)
  - ACIDOSIS [None]
  - CARDIO-RESPIRATORY ARREST [None]
  - COUGH [None]
  - DYSPNOEA [None]
  - HYPOTENSION [None]
  - PNEUMONIA [None]
  - SYNCOPE [None]
